FAERS Safety Report 9985535 (Version 3)
Quarter: 2014Q2

REPORT INFORMATION
  Report Type: Spontaneous
  Country: US (occurrence: US)
  Receive Date: 20140307
  Receipt Date: 20140605
  Transmission Date: 20141212
  Serious: Yes (Life-Threatening, Hospitalization)
  Sender: FDA-Public Use
  Company Number: US-BAYER-2014-033954

PATIENT
  Age: 24 Year
  Sex: Female
  Weight: 108.84 kg

DRUGS (12)
  1. OCELLA [Suspect]
     Indication: CONTRACEPTION
     Dosage: UNK
     Dates: start: 2010, end: 2011
  2. OCELLA [Suspect]
     Indication: PREMENSTRUAL SYNDROME
  3. TRAMADOL [Concomitant]
     Indication: PAIN
     Dosage: 50 MG, EVERY 4-6 HOURS
     Route: 048
  4. TRAMADOL [Concomitant]
     Indication: PAIN
  5. VITAMIN D3 [Concomitant]
     Dosage: 1000 UNIT,2 CAPSULES
     Route: 048
  6. FISH OIL [Concomitant]
     Dosage: 1 EVERY DAY
     Route: 048
  7. CALCIUM CITRATE [Concomitant]
     Dosage: 500 MG, QD
     Route: 048
  8. FLAXSEED OIL [Concomitant]
     Dosage: 1 EVERY DAY
     Route: 048
  9. MULTIVITAMINS [Concomitant]
     Dosage: EVERYDAY
  10. ZOLPIDEM [Concomitant]
     Dosage: 1/2 - 1 TABLET TO SLEEP
     Route: 048
  11. MUPIROCIN [Concomitant]
     Dosage: 2% OINTMENT
     Route: 061
  12. CYMBALTA [Concomitant]
     Indication: FIBROMYALGIA

REACTIONS (1)
  - Pulmonary embolism [Recovering/Resolving]
